FAERS Safety Report 7628561-X (Version None)
Quarter: 2011Q3

REPORT INFORMATION
  Report Type: 
  Country: None (occurrence: None)
  Receive Date: 20110722
  Receipt Date: 20110711
  Transmission Date: 20111222
  Serious: No
  Sender: FDA-Public Use
  Company Number: US-MYLANLABS-2011S1010489

PATIENT
  Age: 68 Year
  Sex: Female

DRUGS (9)
  1. BUPROPION HYDROCHLORIDE [Suspect]
     Indication: DEPRESSION
     Route: 048
     Dates: start: 20110301
  2. ESTRING [Concomitant]
  3. ZANTAC [Concomitant]
  4. CITRICAL /00108001/ [Concomitant]
  5. SIMVASTATIN [Concomitant]
  6. CENTRUM SILVER [Concomitant]
  7. CRANBERRY [Concomitant]
  8. ASPIRIN [Concomitant]
  9. VITAMIN D [Concomitant]

REACTIONS (2)
  - DEPRESSION [None]
  - DRUG EFFECT DECREASED [None]
